FAERS Safety Report 25508146 (Version 1)
Quarter: 2025Q3

REPORT INFORMATION
  Report Type: Spontaneous
  Country: EU (occurrence: EU)
  Receive Date: 20250703
  Receipt Date: 20250703
  Transmission Date: 20251021
  Serious: Yes (Hospitalization)
  Sender: AUROBINDO
  Company Number: EU-CELGENE-NLD-20210802093

PATIENT
  Age: 65 Year
  Sex: Male
  Weight: 90.7 kg

DRUGS (6)
  1. POMALIDOMIDE [Suspect]
     Active Substance: POMALIDOMIDE
     Indication: Plasma cell myeloma
     Dosage: 4 MILLIGRAM, ONCE A DAY
     Route: 048
     Dates: start: 20210210
  2. FLUDARABINE [Suspect]
     Active Substance: FLUDARABINE PHOSPHATE
     Indication: Plasma cell myeloma
     Route: 065
  3. TOLODODEKIN ALFA [Suspect]
     Active Substance: TOLODODEKIN ALFA
     Indication: Plasma cell myeloma
     Route: 065
     Dates: start: 20210210
  4. DEXAMETHASONE [Suspect]
     Active Substance: DEXAMETHASONE
     Indication: Plasma cell myeloma
     Route: 065
     Dates: start: 20210210
  5. CYCLOPHOSPHAMIDE [Suspect]
     Active Substance: CYCLOPHOSPHAMIDE
     Indication: Plasma cell myeloma
     Route: 065
  6. CALCIUM GLUCONATE [Concomitant]
     Active Substance: CALCIUM GLUCONATE
     Indication: Mineral supplementation
     Route: 065
     Dates: start: 20210203, end: 20210212

REACTIONS (1)
  - Pharyngitis streptococcal [Recovered/Resolved]

NARRATIVE: CASE EVENT DATE: 20210314
